FAERS Safety Report 4354590-8 (Version None)
Quarter: 2004Q2

REPORT INFORMATION
  Report Type: 
  Country: None (occurrence: None)
  Receive Date: 20040506
  Receipt Date: 20040506
  Transmission Date: 20050107
  Serious: Yes (Life-Threatening)
  Sender: FDA-Public Use
  Company Number: None

PATIENT
  Age: 78 Year
  Sex: Male
  Weight: 73.9 kg

DRUGS (5)
  1. LOVENOX [Suspect]
     Indication: ANTICOAGULANT THERAPY
     Dosage: 70 MG EVERY 24 H SUBCUTANEOUS
     Route: 058
     Dates: start: 20040412, end: 20040414
  2. PLAVIX [Suspect]
     Indication: ANTICOAGULANT THERAPY
     Dosage: 75 MG EVERY 24 H ORAL
     Route: 048
     Dates: start: 20040409, end: 20040414
  3. RANITIDINE [Concomitant]
  4. SUCRALFATE [Concomitant]
  5. METOPROLOL [Concomitant]

REACTIONS (2)
  - ENCEPHALOPATHY [None]
  - HAEMORRHAGIC STROKE [None]
